FAERS Safety Report 21029091 (Version 1)
Quarter: 2022Q2

REPORT INFORMATION
  Report Type: Spontaneous
  Country: US (occurrence: US)
  Receive Date: 20220630
  Receipt Date: 20220630
  Transmission Date: 20220721
  Serious: Yes (Other)
  Sender: FDA-Public Use
  Company Number: US-GLAXOSMITHKLINE-USCH2022022656

PATIENT

DRUGS (1)
  1. ADVIL [Suspect]
     Active Substance: IBUPROFEN
     Indication: Pain
     Dosage: 2 DF
     Dates: start: 20220623, end: 20220623

REACTIONS (1)
  - Foreign body in throat [Recovering/Resolving]

NARRATIVE: CASE EVENT DATE: 20220623
